FAERS Safety Report 9511593 (Version 2)
Quarter: 2013Q3

REPORT INFORMATION
  Report Type: Spontaneous
  Country: DE (occurrence: DE)
  Receive Date: 20130910
  Receipt Date: 20130920
  Transmission Date: 20140515
  Serious: Yes (Other)
  Sender: FDA-Public Use
  Company Number: PHHY2013DE098311

PATIENT
  Sex: Female

DRUGS (4)
  1. RASILEZ [Suspect]
     Indication: HYPERTENSION
     Dosage: 150 MG, DAILY
  2. RASILEZ [Suspect]
     Dosage: UNK UKN, UNK
  3. BETABLOCK [Concomitant]
     Dosage: UNK UKN, UNK
  4. LOSARTAN [Concomitant]
     Dosage: UNK UKN, UNK

REACTIONS (3)
  - Renal atrophy [Unknown]
  - Renal artery occlusion [Unknown]
  - Renin increased [Unknown]
